FAERS Safety Report 22042499 (Version 1)
Quarter: 2023Q1

REPORT INFORMATION
  Report Type: Spontaneous
  Country: BR (occurrence: BR)
  Receive Date: 20230228
  Receipt Date: 20230228
  Transmission Date: 20230417
  Serious: Yes (Hospitalization)
  Sender: FDA-Public Use
  Company Number: BR-JNJFOC-20230115823

PATIENT
  Sex: Male

DRUGS (1)
  1. CONCERTA [Suspect]
     Active Substance: METHYLPHENIDATE HYDROCHLORIDE
     Indication: Attention deficit hyperactivity disorder
     Dosage: DUE DATE: JAN-2024
     Route: 048
     Dates: start: 20221014

REACTIONS (9)
  - Dry mouth [Unknown]
  - Asthenia [Unknown]
  - Confusional state [Unknown]
  - Dehydration [Unknown]
  - Nausea [Unknown]
  - Dizziness [Unknown]
  - Headache [Unknown]
  - Taste disorder [Unknown]
  - Decreased appetite [Unknown]
